FAERS Safety Report 20631384 (Version 1)
Quarter: 2022Q1

REPORT INFORMATION
  Report Type: Spontaneous
  Country: CA (occurrence: None)
  Receive Date: 20220324
  Receipt Date: 20220324
  Transmission Date: 20220423
  Serious: Yes (Other)
  Sender: FDA-Public Use
  Company Number: CA-PFIZER INC-202200430960

PATIENT
  Age: 79 Year
  Sex: Female

DRUGS (1)
  1. METHOTREXATE [Suspect]
     Active Substance: METHOTREXATE
     Indication: Product used for unknown indication
     Dosage: 1 DF, UNK DOSE, FREQ
     Route: 065
     Dates: start: 20140626, end: 20140917

REACTIONS (4)
  - Abdominal discomfort [Unknown]
  - Encephalopathy [Unknown]
  - Treatment failure [Unknown]
  - Drug intolerance [Unknown]

NARRATIVE: CASE EVENT DATE: 20140101
